FAERS Safety Report 7794044-X (Version None)
Quarter: 2011Q4

REPORT INFORMATION
  Report Type: 
  Country: None (occurrence: None)
  Receive Date: 20111004
  Receipt Date: 20110921
  Transmission Date: 20120403
  Serious: Yes (Death, Hospitalization, Other)
  Sender: FDA-Public Use
  Company Number: GB-RANBAXY-2011R1-48511

PATIENT
  Age: 24 Year
  Sex: Male

DRUGS (5)
  1. ASPIRIN [Suspect]
     Indication: PRODUCT USED FOR UNKNOWN INDICATION
     Dosage: UNK
     Route: 048
  2. IBUPROFEN [Suspect]
     Indication: PRODUCT USED FOR UNKNOWN INDICATION
     Dosage: UNK
     Route: 048
  3. ACETAMINOPHEN [Suspect]
     Indication: PRODUCT USED FOR UNKNOWN INDICATION
     Dosage: UNK
     Route: 048
  4. FERROUS SULFATE TAB [Suspect]
     Indication: PRODUCT USED FOR UNKNOWN INDICATION
     Dosage: UNK
     Route: 048
  5. KETAMINE HCL [Suspect]
     Indication: PRODUCT USED FOR UNKNOWN INDICATION
     Dosage: UNK
     Route: 048

REACTIONS (11)
  - BRAIN STEM SYNDROME [None]
  - BRAIN DEATH [None]
  - ASPERGILLOSIS [None]
  - HEPATIC NECROSIS [None]
  - COMPLETED SUICIDE [None]
  - SEPTIC EMBOLUS [None]
  - ACUTE HEPATIC FAILURE [None]
  - NEUROLOGICAL SYMPTOM [None]
  - MULTIPLE DRUG OVERDOSE [None]
  - INTENTIONAL OVERDOSE [None]
  - SEPSIS [None]
